FAERS Safety Report 13248010 (Version 2)
Quarter: 2017Q2

REPORT INFORMATION
  Report Type: Spontaneous
  Country: US (occurrence: US)
  Receive Date: 20170217
  Receipt Date: 20170414
  Transmission Date: 20170830
  Serious: Yes (Other)
  Sender: FDA-Public Use
  Company Number: US-PFIZER INC-2017065278

PATIENT
  Age: 7 Year
  Sex: Male

DRUGS (42)
  1. DEXTROSE W/POTASSIUM CHLORIDE/SODIUM CHLORIDE [Concomitant]
     Dosage: UNK [DEXTROSE: 5% AND 0.45%]/[POTASSIUM CHLORIDE: 20MEQ]/[SODIUM CHLORIDE: 1000ML]
  2. ATENOLOL. [Concomitant]
     Active Substance: ATENOLOL
     Dosage: 2 MG/ML, UNK
     Route: 048
  3. GABAPENTIN. [Concomitant]
     Active Substance: GABAPENTIN
     Dosage: 150 MG, UNK
  4. GABAPENTIN. [Concomitant]
     Active Substance: GABAPENTIN
     Dosage: UNK [250 MG/5ML]
     Route: 048
  5. MORPHINE [Concomitant]
     Active Substance: MORPHINE
     Dosage: 2MG/ML
     Route: 042
  6. ACETAMINOPHEN. [Concomitant]
     Active Substance: ACETAMINOPHEN
     Dosage: UNK [160 MG/5ML]
  7. HEPARIN LOCK FLUSH [Concomitant]
     Active Substance: HEPARIN SODIUM
     Dosage: UNK [100 UNITS/ML INJ 5 ML]
  8. AMLODIPINE [Concomitant]
     Active Substance: AMLODIPINE BESYLATE
     Dosage: 7.5 MG, UNK
  9. COTRIMOXAZOLE [Concomitant]
     Active Substance: SULFAMETHOXAZOLE\TRIMETHOPRIM
     Dosage: 49.6 MG, UNK
  10. MIRALAX [Concomitant]
     Active Substance: POLYETHYLENE GLYCOL 3350
     Dosage: 8.5 G, UNK
  11. SODIUM CHLORIDE. [Concomitant]
     Active Substance: SODIUM CHLORIDE
     Dosage: 0.9 %, UNK
  12. BOLUS [Concomitant]
     Dosage: 0.9 %, UNK
  13. METHOTREXATE SODIUM. [Suspect]
     Active Substance: METHOTREXATE SODIUM
     Indication: ACUTE LYMPHOCYTIC LEUKAEMIA
     Dosage: UNK
  14. BLINATUMOMAB [Concomitant]
     Active Substance: BLINATUMOMAB
     Dosage: UNK
  15. ONDANSETRON [Concomitant]
     Active Substance: ONDANSETRON
     Dosage: 2 MG/ML, UNK
  16. HEPARIN LOCK FLUSH [Concomitant]
     Active Substance: HEPARIN SODIUM
     Dosage: UNK [10 UNITS/ML INJ 3 ML]
  17. VORICONAZOLE. [Concomitant]
     Active Substance: VORICONAZOLE
     Dosage: 207 MG, UNK
  18. VANCOMYCIN HCL [Concomitant]
     Active Substance: VANCOMYCIN HYDROCHLORIDE
     Dosage: UNK
     Route: 042
  19. INOTUZUMAB OZOGAMICIN [Concomitant]
     Active Substance: INOTUZUMAB OZOGAMICIN
     Dosage: UNK
  20. OMEPRAZOLE. [Concomitant]
     Active Substance: OMEPRAZOLE
     Dosage: 20 MG, UNK
  21. CALCIUM CARBONATE. [Concomitant]
     Active Substance: CALCIUM CARBONATE
     Dosage: 400 MG, UNK
  22. DIPHENHYDRAMINE. [Concomitant]
     Active Substance: DIPHENHYDRAMINE
     Dosage: 12.5 MG, UNK
  23. PANTOPRAZOLE [Concomitant]
     Active Substance: PANTOPRAZOLE
     Dosage: 2 MG/ML, UNK
     Route: 048
  24. CYTARABINE. [Suspect]
     Active Substance: CYTARABINE
     Indication: ACUTE LYMPHOCYTIC LEUKAEMIA
     Dosage: UNK
  25. CEFEPIME [Concomitant]
     Active Substance: CEFEPIME HYDROCHLORIDE
     Dosage: 1240 MG, UNK
  26. MIRALAX [Concomitant]
     Active Substance: POLYETHYLENE GLYCOL 3350
     Dosage: 17 G, UNK [ORAL PACKET]
     Route: 048
  27. AMBISOME [Concomitant]
     Active Substance: AMPHOTERICIN B
     Dosage: 124 MG, UNK
  28. CEFEPIME AND DEXTROSE [Concomitant]
     Dosage: UNK
     Route: 042
  29. LORAZEPAM. [Concomitant]
     Active Substance: LORAZEPAM
     Dosage: 2 MG/ML, UNK
     Route: 042
  30. KEPPRA [Concomitant]
     Active Substance: LEVETIRACETAM
     Indication: PROPHYLAXIS
     Dosage: 300 MG, UNK
  31. CHLORHEXIDINE [Concomitant]
     Active Substance: CHLORHEXIDINE
     Dosage: 0.12 %, UNK [0.12% ORAL RINSE 10 ML]
     Route: 048
  32. LEVETIRACETAM. [Concomitant]
     Active Substance: LEVETIRACETAM
     Dosage: 300 MG, UNK
     Route: 042
  33. ACETAMINOPHEN. [Concomitant]
     Active Substance: ACETAMINOPHEN
     Dosage: 300.8 MG, UNK
  34. LIDOCAINE AND EPINEPHRINE [Concomitant]
     Active Substance: EPINEPHRINE\LIDOCAINE HYDROCHLORIDE
     Dosage: UNK [LIDOCAINE HYDROCHLORIDE: 1%]/[EPINEPHRINE: 1:100,000]
  35. BACITRACIN POLYMYXIN B [Concomitant]
     Dosage: UNK
  36. AMLODIPINE BESYLATE. [Concomitant]
     Active Substance: AMLODIPINE BESYLATE
     Dosage: UNK [160 MG/5ML]
  37. ATENOLOL. [Concomitant]
     Active Substance: ATENOLOL
     Dosage: 11.5 MG, UNK
  38. MORPHINE [Concomitant]
     Active Substance: MORPHINE
     Dosage: 1 MG, UNK
  39. NIFEDIPINE. [Concomitant]
     Active Substance: NIFEDIPINE
     Dosage: 10 MG, UNK
  40. NIFEDIPINE. [Concomitant]
     Active Substance: NIFEDIPINE
     Dosage: 4 MG/ML, UNK
     Route: 048
  41. ONDANSETRON [Concomitant]
     Active Substance: ONDANSETRON
     Dosage: 2 MG, UNK
  42. BACTRIM [Concomitant]
     Active Substance: SULFAMETHOXAZOLE\TRIMETHOPRIM
     Dosage: UNK [SULFAMETHOXAZOLE: 200MG/5ML]/[TRIMETHOPRIM: 40MG/5ML]

REACTIONS (11)
  - Subarachnoid haemorrhage [Unknown]
  - Cerebrovascular accident [Unknown]
  - Acute lymphocytic leukaemia recurrent [Unknown]
  - Peroneal nerve palsy [Unknown]
  - Bacteraemia [Unknown]
  - Hemiparesis [Unknown]
  - Aspergillus infection [Unknown]
  - Drug intolerance [Unknown]
  - Rash [Unknown]
  - Haematoma [Unknown]
  - Disease progression [Unknown]

NARRATIVE: CASE EVENT DATE: 20170205
